FAERS Safety Report 8267614-2 (Version None)
Quarter: 2012Q2

REPORT INFORMATION
  Report Type: 
  Country: None (occurrence: None)
  Receive Date: 20120409
  Receipt Date: 20120330
  Transmission Date: 20120825
  Serious: Yes (Life-Threatening, Hospitalization, Other)
  Sender: FDA-Public Use
  Company Number: DE-ELI_LILLY_AND_COMPANY-DE201204000074

PATIENT
  Age: 32 Year
  Sex: Female

DRUGS (2)
  1. CITALOPRAM HYDROBROMIDE [Concomitant]
     Dosage: 20 MG, UNKNOWN
     Route: 065
     Dates: start: 20120101
  2. ZYPREXA [Suspect]
     Indication: BIPOLAR DISORDER
     Dosage: 10 MG, UNKNOWN
     Route: 048
     Dates: start: 20120101, end: 20120328

REACTIONS (6)
  - RESPIRATORY DEPRESSION [None]
  - LOSS OF CONSCIOUSNESS [None]
  - DRUG LEVEL ABOVE THERAPEUTIC [None]
  - SUICIDAL IDEATION [None]
  - SUICIDE ATTEMPT [None]
  - OVERDOSE [None]
